FAERS Safety Report 21831713 (Version 2)
Quarter: 2023Q1

REPORT INFORMATION
  Report Type: Report from Study
  Country: BR (occurrence: BR)
  Receive Date: 20230106
  Receipt Date: 20230308
  Transmission Date: 20230418
  Serious: Yes (Hospitalization, Other)
  Sender: FDA-Public Use
  Company Number: BR-UCBSA-2023000546

PATIENT
  Age: 0 Year
  Sex: Male

DRUGS (12)
  1. LEVETIRACETAM [Suspect]
     Active Substance: LEVETIRACETAM
     Indication: Epilepsy
     Dosage: 3 MILLILITER, 2X/DAY (BID)
     Route: 048
     Dates: start: 20200605
  2. PYRIDOXINE [Concomitant]
     Active Substance: PYRIDOXINE
     Indication: Seizure
     Dosage: UNK
     Dates: start: 20200605, end: 202010
  3. PYRIDOXINE [Concomitant]
     Active Substance: PYRIDOXINE
     Indication: Vitamin supplementation
  4. TOPIRAMATE [Concomitant]
     Active Substance: TOPIRAMATE
     Indication: Epilepsy
     Dosage: 75 MILLIGRAM,1 TABLETS 2X/DAY (BID)
     Dates: start: 2021
  5. VIGABATRIN [Concomitant]
     Active Substance: VIGABATRIN
     Indication: Epilepsy
     Dosage: 500 MILLIGRAM,2 TABLETS 2X/DAY (BID)
     Dates: start: 2021
  6. VIGABATRIN [Concomitant]
     Active Substance: VIGABATRIN
     Dosage: 1000 MILLIGRAM, 2X/DAY (BID)
     Dates: start: 2021
  7. CLOBAZAM [Concomitant]
     Active Substance: CLOBAZAM
     Indication: Epilepsy
     Dosage: 1/4 TABLET AT NIGHT, ONCE DAILY (QD)
     Dates: start: 2022
  8. CLOBAZAM [Concomitant]
     Active Substance: CLOBAZAM
     Dosage: 10 MILLIGRAM, ONCE DAILY (QD)
     Dates: start: 2022
  9. VALPROATE SODIUM [Concomitant]
     Active Substance: VALPROATE SODIUM
     Indication: Epilepsy
     Dosage: 250 MILLIGRAM, UNK
     Dates: start: 2022
  10. CANNABIDIOL [Concomitant]
     Active Substance: CANNABIDIOL
     Indication: Epilepsy
     Dosage: 0.5 MILLILITER, 2X/DAY (BID)
     Route: 060
     Dates: start: 202210
  11. SERETIDE [Concomitant]
     Active Substance: FLUTICASONE PROPIONATE\SALMETEROL XINAFOATE
     Indication: Bronchopulmonary dysplasia
     Dosage: 125 MICROGRAM, 2X/DAY (BID)
     Dates: start: 2021
  12. PHENOBARBITAL [Concomitant]
     Active Substance: PHENOBARBITAL
     Indication: Seizure
     Dosage: UNK
     Dates: start: 2020

REACTIONS (4)
  - Gastrostomy [Unknown]
  - Seizure [Not Recovered/Not Resolved]
  - Infantile spasms [Unknown]
  - Off label use [Unknown]

NARRATIVE: CASE EVENT DATE: 20210101
